FAERS Safety Report 6525231-6 (Version None)
Quarter: 2009Q4

REPORT INFORMATION
  Report Type: 
  Country: None (occurrence: None)
  Receive Date: 20091222
  Receipt Date: 20091203
  Transmission Date: 20100525
  Serious: Yes (Life-Threatening, Hospitalization, Other)
  Sender: FDA-Public Use
  Company Number: 002265

PATIENT
  Age: 39 Year
  Sex: Male

DRUGS (11)
  1. OMEPRAZOLE [Suspect]
     Dosage: (ORAL)
     Route: 048
     Dates: start: 20090217
  2. SIMVASTATIN [Suspect]
     Indication: BLOOD CHOLESTEROL INCREASED
     Dosage: (ORAL)
     Route: 048
     Dates: start: 20090217
  3. HYOSCINE HBR HYT [Suspect]
     Dosage: (ORAL)
     Route: 048
     Dates: start: 20090217
  4. CLOZAPINE [Suspect]
     Dosage: (600 MG ORAL), (ORAL), (ORAL)
     Route: 048
     Dates: start: 20031202
  5. CLOZAPINE [Suspect]
     Dosage: (600 MG ORAL), (ORAL), (ORAL)
     Route: 048
     Dates: start: 20090217
  6. CLOMIPRAMINE HCL [Suspect]
     Indication: ANXIETY
     Dosage: (200 MG ORAL), (ORAL)
     Route: 048
     Dates: start: 20090217
  7. CLOMIPRAMINE HCL [Suspect]
     Indication: DEPRESSION
     Dosage: (200 MG ORAL), (ORAL)
     Route: 048
     Dates: start: 20090217
  8. METFORMIN HCL [Suspect]
     Indication: TYPE 2 DIABETES MELLITUS
     Dosage: (1500 MG ORAL)
     Route: 048
  9. LISINOPRIL [Suspect]
     Indication: HYPERTENSION
     Dosage: (5 MG ORAL)
     Route: 048
  10. THIAMINE [Concomitant]
  11. SENNOSIDE [Concomitant]

REACTIONS (5)
  - AGITATION [None]
  - COMA SCALE ABNORMAL [None]
  - MULTIPLE DRUG OVERDOSE [None]
  - NEUTROPHIL COUNT INCREASED [None]
  - WHITE BLOOD CELL COUNT INCREASED [None]
